FAERS Safety Report 9962528 (Version 1)
Quarter: 2014Q1

REPORT INFORMATION
  Report Type: Report from Study
  Country: US (occurrence: US)
  Receive Date: 20140305
  Receipt Date: 20140305
  Transmission Date: 20141002
  Serious: No
  Sender: FDA-Public Use
  Company Number: US-ABBVIE-13P-163-1115489-00

PATIENT
  Age: 66 Year
  Sex: Female

DRUGS (20)
  1. HUMIRA [Suspect]
     Indication: COLITIS ULCERATIVE
     Dosage: DAY 1
     Route: 058
     Dates: start: 20130501, end: 20130501
  2. HUMIRA [Suspect]
     Indication: CROHN^S DISEASE
     Dosage: DAY 15
     Route: 058
  3. HUMIRA [Suspect]
     Dosage: DAY 29
     Route: 058
     Dates: end: 20130528
  4. TRAMADOL [Concomitant]
     Indication: PAIN
  5. ZYRTEC [Concomitant]
     Indication: SEASONAL ALLERGY
  6. ZYRTEC [Concomitant]
     Indication: PROPHYLAXIS
  7. THYROXINE [Concomitant]
     Indication: THYROID DISORDER
  8. CELEXA [Concomitant]
     Indication: MIGRAINE
  9. CELEXA [Concomitant]
     Indication: ANTIDEPRESSANT THERAPY
  10. PANTOPRAZOLE [Concomitant]
     Indication: GASTROOESOPHAGEAL REFLUX DISEASE
  11. ROPINIROLE HCL [Concomitant]
     Indication: RESTLESS LEGS SYNDROME
     Dosage: AT NIGHT
  12. ASPIRIN [Concomitant]
     Indication: PRODUCT USED FOR UNKNOWN INDICATION
  13. ASPIRIN [Concomitant]
     Indication: CARDIAC DISORDER
  14. FOLIC ACID [Concomitant]
     Indication: VITAMIN SUPPLEMENTATION
  15. HYDROCHLOROTHIAZIDE [Concomitant]
     Indication: LOCAL SWELLING
  16. FLEXERIL [Concomitant]
     Indication: PRODUCT USED FOR UNKNOWN INDICATION
  17. TRAZODONE [Concomitant]
     Indication: PRODUCT USED FOR UNKNOWN INDICATION
     Dosage: AT BEDTIME
  18. VITAMIN D [Concomitant]
     Indication: PRODUCT USED FOR UNKNOWN INDICATION
  19. ALLOPURINOL [Concomitant]
     Indication: GOUT
  20. APRISO [Concomitant]
     Indication: CROHN^S DISEASE

REACTIONS (5)
  - Oropharyngeal pain [Unknown]
  - Pneumonia [Recovered/Resolved]
  - Bronchitis [Recovered/Resolved]
  - Ear infection [Recovered/Resolved]
  - Platelet count decreased [Unknown]
